FAERS Safety Report 15274730 (Version 2)
Quarter: 2022Q1

REPORT INFORMATION
  Report Type: Spontaneous
  Country: CH (occurrence: CH)
  Receive Date: 20180814
  Receipt Date: 20220128
  Transmission Date: 20220424
  Serious: Yes (Hospitalization)
  Sender: FDA-Public Use
  Company Number: None

PATIENT
  Age: 83 Year
  Sex: Male
  Weight: 84 kg

DRUGS (20)
  1. ENALAPRIL [Suspect]
     Active Substance: ENALAPRIL
     Dosage: (20)
     Route: 065
     Dates: end: 20180713
  2. AMOXICILLIN\CLAVULANATE POTASSIUM [Suspect]
     Active Substance: AMOXICILLIN\CLAVULANATE POTASSIUM
     Route: 048
     Dates: start: 20180629, end: 20180629
  3. AMOXICILLIN\CLAVULANATE POTASSIUM [Suspect]
     Active Substance: AMOXICILLIN\CLAVULANATE POTASSIUM
     Dates: start: 20180711, end: 20180713
  4. ATORVASTATIN CALCIUM [Suspect]
     Active Substance: ATORVASTATIN CALCIUM
     Route: 048
     Dates: end: 20180713
  5. ACETAMINOPHEN [Suspect]
     Active Substance: ACETAMINOPHEN
     Route: 048
     Dates: start: 20180629, end: 20180713
  6. ASPIRIN [Concomitant]
     Active Substance: ASPIRIN
     Route: 048
     Dates: end: 20180716
  7. ASPIRIN [Concomitant]
     Active Substance: ASPIRIN
     Dates: start: 20180719
  8. ESOMEPRAZOL AXAPHARM [Concomitant]
     Route: 048
     Dates: end: 20180707
  9. PANTOPRAZOLE [Concomitant]
     Active Substance: PANTOPRAZOLE
     Route: 048
     Dates: start: 20180708, end: 20180716
  10. METAMIZOLE [Concomitant]
     Active Substance: METAMIZOLE
     Route: 048
     Dates: start: 20180629, end: 20180716
  11. TORSEMIDE [Concomitant]
     Active Substance: TORSEMIDE
     Route: 048
     Dates: start: 20180629, end: 20180716
  12. THIAMINE HYDROCHLORIDE [Concomitant]
     Active Substance: THIAMINE HYDROCHLORIDE
     Dates: start: 20180629, end: 20180716
  13. SODIUM PICOSULFATE [Concomitant]
     Active Substance: SODIUM PICOSULFATE
     Route: 048
     Dates: start: 20180629, end: 20180716
  14. Becozyme-c forte [Concomitant]
     Route: 048
     Dates: start: 20180629, end: 20180716
  15. Paspertin [Concomitant]
     Dates: start: 20180629, end: 20180716
  16. Paragar [Concomitant]
     Route: 048
     Dates: start: 20180629, end: 20180716
  17. ALBUTEROL SULFATE\IPRATROPIUM BROMIDE [Concomitant]
     Active Substance: ALBUTEROL SULFATE\IPRATROPIUM BROMIDE
     Route: 055
     Dates: start: 20180629, end: 20180716
  18. TAMSULOSIN-MEPHA [Concomitant]
  19. LORAZEPAM [Concomitant]
     Active Substance: LORAZEPAM
     Dosage: AS NECESSARY
     Route: 060
  20. FENTANYL [Concomitant]
     Active Substance: FENTANYL
     Dosage: (1)
     Dates: start: 20180708

REACTIONS (2)
  - Cholestasis [Recovering/Resolving]
  - Drug-induced liver injury [Recovering/Resolving]

NARRATIVE: CASE EVENT DATE: 20180711
